FAERS Safety Report 11769981 (Version 2)
Quarter: 2015Q4

REPORT INFORMATION
  Report Type: Spontaneous
  Country: US (occurrence: US)
  Receive Date: 20151123
  Receipt Date: 20151123
  Transmission Date: 20160304
  Serious: No
  Sender: FDA-Public Use
  Company Number: US-PERRIGO-14US010124

PATIENT
  Age: 67 Year
  Sex: Female
  Weight: 64.63 kg

DRUGS (1)
  1. POLYETHYLENE GLYCOL 3350. [Suspect]
     Active Substance: POLYETHYLENE GLYCOL 3350
     Indication: CONSTIPATION
     Dosage: 17 G, ONCE TO TWICE DAILY
     Route: 048
     Dates: start: 201407

REACTIONS (5)
  - Drug ineffective [Unknown]
  - Abdominal pain [Recovered/Resolved]
  - Incorrect drug administration duration [Unknown]
  - Inappropriate schedule of drug administration [Unknown]
  - Diarrhoea [Recovered/Resolved]

NARRATIVE: CASE EVENT DATE: 201407
